FAERS Safety Report 9061940 (Version 1)
Quarter: 2013Q1

REPORT INFORMATION
  Report Type: Spontaneous
  Country: BR (occurrence: None)
  Receive Date: 20130118
  Receipt Date: 20130118
  Transmission Date: 20140127
  Serious: Yes (Other)
  Sender: FDA-Public Use
  Company Number: DSJ-2013-00481

PATIENT
  Age: 43 Year
  Sex: Female

DRUGS (1)
  1. BENICAR [Suspect]
     Indication: HYPERTENSION
     Dosage: (20 MG, 1 IN 1 D)
     Route: 048
     Dates: start: 201212

REACTIONS (7)
  - Increased upper airway secretion [None]
  - Aphonia [None]
  - Throat tightness [None]
  - Hypertension [None]
  - Anxiety [None]
  - Dysphonia [None]
  - Unevaluable event [None]
